FAERS Safety Report 14225909 (Version 1)
Quarter: 2017Q4

REPORT INFORMATION
  Report Type: Spontaneous
  Country: US (occurrence: US)
  Receive Date: 20171127
  Receipt Date: 20171127
  Transmission Date: 20180321
  Serious: No
  Sender: FDA-Public Use
  Company Number: US-ASTRAZENECA-2017SF16683

PATIENT
  Sex: Male

DRUGS (2)
  1. XYZAL [Concomitant]
     Active Substance: LEVOCETIRIZINE DIHYDROCHLORIDE
     Indication: MULTIPLE ALLERGIES
     Route: 048
  2. SYMBICORT [Suspect]
     Active Substance: BUDESONIDE\FORMOTEROL FUMARATE DIHYDRATE
     Indication: CHRONIC OBSTRUCTIVE PULMONARY DISEASE
     Dosage: 160/4.5, 1 PUFF TWICE A DAY
     Route: 055
     Dates: start: 2016

REACTIONS (6)
  - Hypersensitivity [Unknown]
  - Off label use [Unknown]
  - Rhinorrhoea [Unknown]
  - Confusional state [Unknown]
  - Circumstance or information capable of leading to medication error [Unknown]
  - Eye disorder [Unknown]
